FAERS Safety Report 6535276-8 (Version None)
Quarter: 2010Q1

REPORT INFORMATION
  Report Type: 
  Country: None (occurrence: None)
  Receive Date: 20100113
  Receipt Date: 20100107
  Transmission Date: 20100710
  Serious: Yes (Hospitalization)
  Sender: FDA-Public Use
  Company Number: FR-WYE-G05285110

PATIENT
  Sex: Female

DRUGS (7)
  1. EFFEXOR [Suspect]
     Route: 048
     Dates: start: 20080101, end: 20090301
  2. EFFEXOR [Suspect]
     Route: 048
     Dates: start: 20090301, end: 20090930
  3. ARIMIDEX [Concomitant]
     Dosage: 1 MG TOTAL DAILY
  4. CERIS [Concomitant]
     Dosage: UNKNOWN
  5. DEBRIDAT [Concomitant]
     Dosage: UNKNOWN
  6. IXPRIM [Suspect]
     Indication: POSTOPERATIVE ANALGESIA
     Dosage: UNKNOWN
     Route: 048
     Dates: start: 20090903, end: 20090930
  7. NOCTRAN 10 [Concomitant]

REACTIONS (6)
  - ABNORMAL BEHAVIOUR [None]
  - CONFUSIONAL STATE [None]
  - FALL [None]
  - FEMORAL NECK FRACTURE [None]
  - MANIA [None]
  - SEROTONIN SYNDROME [None]
